FAERS Safety Report 7979870-6 (Version None)
Quarter: 2011Q4

REPORT INFORMATION
  Report Type: 
  Country: None (occurrence: None)
  Receive Date: 20111214
  Receipt Date: 20111206
  Transmission Date: 20120403
  Serious: Yes (Other)
  Sender: FDA-Public Use
  Company Number: JP-BRISTOL-MYERS SQUIBB COMPANY-16280208

PATIENT
  Age: 68 Year
  Sex: Male

DRUGS (2)
  1. VEPESID [Suspect]
     Indication: SMALL CELL LUNG CANCER LIMITED STAGE
  2. CARBOPLATIN [Concomitant]

REACTIONS (1)
  - ANAPHYLACTIC SHOCK [None]
